FAERS Safety Report 5507946-1 (Version None)
Quarter: 2007Q4

REPORT INFORMATION
  Report Type: 
  Country: None (occurrence: None)
  Receive Date: 20071106
  Receipt Date: 20071026
  Transmission Date: 20080405
  Serious: Yes (Other)
  Sender: FDA-Public Use
  Company Number: US-JNJFOC-20071007519

PATIENT
  Age: 51 Year
  Sex: Male

DRUGS (3)
  1. TOPAMAX [Suspect]
     Indication: DRUG USE FOR UNKNOWN INDICATION
  2. RIBAVIRIN [Suspect]
     Indication: HEPATITIS C
     Dosage: ON THERAPY FOR 56 DAYS
     Route: 048
  3. PEGASYS [Suspect]
     Indication: HEPATITIS C
     Dosage: 56 DAYS OF THERAPY
     Route: 058

REACTIONS (6)
  - DEAFNESS [None]
  - HAEMOLYTIC ANAEMIA [None]
  - MIGRAINE [None]
  - PLATELET COUNT DECREASED [None]
  - TINNITUS [None]
  - WHITE BLOOD CELL COUNT DECREASED [None]
